FAERS Safety Report 19448200 (Version 1)
Quarter: 2021Q2

REPORT INFORMATION
  Report Type: Report from Study
  Country: FR (occurrence: FR)
  Receive Date: 20210622
  Receipt Date: 20210622
  Transmission Date: 20210717
  Serious: Yes (Hospitalization)
  Sender: FDA-Public Use
  Company Number: FR-JNJFOC-20210243449

PATIENT
  Age: 53 Year
  Sex: Male

DRUGS (10)
  1. LORMETAZEPAM [Concomitant]
     Active Substance: LORMETAZEPAM
     Dates: start: 20210215
  2. SPRAVATO [Suspect]
     Active Substance: ESKETAMINE
     Dates: start: 20210222
  3. CYAMEMAZINE [Concomitant]
     Active Substance: CYAMEMAZINE
     Indication: ANXIETY
     Dates: start: 20200207
  4. SPRAVATO [Suspect]
     Active Substance: ESKETAMINE
     Dates: start: 20210225
  5. PROZAC [Concomitant]
     Active Substance: FLUOXETINE HYDROCHLORIDE
     Indication: DEPRESSION
     Dates: start: 20210111
  6. ANETHOL TRITHIONE [Concomitant]
     Active Substance: ANETHOLTRITHION
     Dates: start: 20181015
  7. SPRAVATO [Suspect]
     Active Substance: ESKETAMINE
     Indication: DEPRESSION
     Dates: start: 20210219
  8. SPRAVATO [Suspect]
     Active Substance: ESKETAMINE
     Dates: start: 20210219
  9. FLUOXETINE [Concomitant]
     Active Substance: FLUOXETINE HYDROCHLORIDE
     Indication: DEPRESSION
     Route: 048
     Dates: start: 20210111
  10. PRAZEPAM [Concomitant]
     Active Substance: PRAZEPAM
     Indication: ANXIETY
     Dates: start: 20210215

REACTIONS (4)
  - Feeling abnormal [Recovered/Resolved]
  - Psychotic disorder [Recovered/Resolved]
  - Dissociative disorder [Recovered/Resolved]
  - Sedation [Recovered/Resolved]

NARRATIVE: CASE EVENT DATE: 20210219
